FAERS Safety Report 11681291 (Version 2)
Quarter: 2015Q4

REPORT INFORMATION
  Report Type: Spontaneous
  Country: US (occurrence: US)
  Receive Date: 20151027
  Receipt Date: 20151110
  Transmission Date: 20160304
  Serious: No
  Sender: FDA-Public Use
  Company Number: US-ELI_LILLY_AND_COMPANY-US201010002666

PATIENT
  Age: 78 Year
  Sex: Female

DRUGS (4)
  1. FORTEO [Suspect]
     Active Substance: TERIPARATIDE
     Dosage: 20 UG, QD
  2. PREVACID [Concomitant]
     Active Substance: LANSOPRAZOLE
     Indication: GASTRIC ULCER
  3. CALCIUM CHLORATE [Concomitant]
     Indication: DECREASED APPETITE
     Dosage: UNK, AS NEEDED
  4. FORTEO [Suspect]
     Active Substance: TERIPARATIDE
     Indication: OSTEOPOROSIS
     Dosage: 20 UG, DAILY (1/D)
     Route: 065
     Dates: start: 201009

REACTIONS (7)
  - Gastrointestinal disorder [Unknown]
  - Injection site pruritus [Unknown]
  - Diarrhoea [Unknown]
  - Faeces discoloured [Unknown]
  - Gastric ulcer [Unknown]
  - Decreased appetite [Unknown]
  - Weight decreased [Unknown]

NARRATIVE: CASE EVENT DATE: 20100930
